FAERS Safety Report 9219789 (Version 1)
Quarter: 2013Q2

REPORT INFORMATION
  Report Type: Spontaneous
  Country: HU (occurrence: HU)
  Receive Date: 20130409
  Receipt Date: 20130409
  Transmission Date: 20140414
  Serious: Yes (Death, Other)
  Sender: FDA-Public Use
  Company Number: HU-AMGEN-HUNSP2013023819

PATIENT
  Age: 90 Year
  Sex: Female

DRUGS (2)
  1. PROLIA [Suspect]
     Indication: PRODUCT USED FOR UNKNOWN INDICATION
  2. ALFA D [Concomitant]

REACTIONS (6)
  - Respiratory failure [Fatal]
  - Cardiac failure [Fatal]
  - Renal failure chronic [Fatal]
  - Asphyxia [Unknown]
  - Malaise [Unknown]
  - Hypocalcaemia [Unknown]
